FAERS Safety Report 8958652 (Version 1)
Quarter: 2012Q4

REPORT INFORMATION
  Report Type: Spontaneous
  Country: US (occurrence: None)
  Receive Date: 20121206
  Receipt Date: 20121206
  Transmission Date: 20130627
  Serious: Yes (Hospitalization, Other)
  Sender: FDA-Public Use
  Company Number: None

PATIENT
  Sex: Female
  Weight: 104.33 kg

DRUGS (1)
  1. MIRENA [Suspect]
     Indication: BIRTH CONTROL
     Dates: start: 20080429, end: 20110904

REACTIONS (9)
  - Device dislocation [None]
  - Pregnancy with contraceptive device [None]
  - Maternal exposure during pregnancy [None]
  - Ovarian cyst [None]
  - Caesarean section [None]
  - Premature delivery [None]
  - Device dislocation [None]
  - Post procedural haematoma [None]
  - Abdominal mass [None]
